FAERS Safety Report 21629803 (Version 3)
Quarter: 2023Q4

REPORT INFORMATION
  Report Type: Spontaneous
  Country: IT (occurrence: IT)
  Receive Date: 20221122
  Receipt Date: 20231006
  Transmission Date: 20240110
  Serious: Yes (Other)
  Sender: FDA-Public Use
  Company Number: IT-BAYER-2018-110831

PATIENT
  Age: 63 Year
  Sex: Male

DRUGS (3)
  1. ULTRAVIST [Suspect]
     Active Substance: IOPROMIDE
     Indication: Computerised tomogram abdomen
     Dosage: 85 ML, ONCE
     Dates: start: 20180514, end: 20180514
  2. ULTRAVIST [Suspect]
     Active Substance: IOPROMIDE
     Indication: Computerised tomogram
     Dosage: 85 CC  D IN BOLO IN TOTALE LA DURATA DELLA SOMMINISTRAZIONE ? STATA IN UN UNICO BOLO CON INIETTORE A
     Dates: start: 20180514, end: 20180514
  3. IODINE [Concomitant]
     Active Substance: IODINE
     Dosage: 85 CL, 85 CC D IN BOLUS IN TOTAL
     Dates: start: 20180514, end: 20180514

REACTIONS (8)
  - Muscular weakness [Recovered/Resolved]
  - Tremor [Recovered/Resolved]
  - Pyrexia [Recovered/Resolved]
  - Headache [Recovered/Resolved]
  - Muscular weakness [Recovered/Resolved]
  - Vomiting [Recovered/Resolved]
  - Asthenia [Recovered/Resolved]
  - Hyperpyrexia [Recovered/Resolved]

NARRATIVE: CASE EVENT DATE: 20180514
